FAERS Safety Report 7985784-8 (Version None)
Quarter: 2011Q4

REPORT INFORMATION
  Report Type: 
  Country: None (occurrence: None)
  Receive Date: 20111214
  Receipt Date: 20111130
  Transmission Date: 20120403
  Serious: Yes (Hospitalization, Other)
  Sender: FDA-Public Use
  Company Number: 2011MA017044

PATIENT
  Age: 84 Year
  Sex: Female
  Weight: 72.5755 kg

DRUGS (18)
  1. HYDROCHLOROTHIAZIDE (CON.) [Concomitant]
  2. TRAMADOL (CON.) [Concomitant]
  3. WARFARIN (CON.) [Concomitant]
  4. LEVOTHYROXINE (CON.) [Concomitant]
  5. HYDROCODONE (CON.) [Concomitant]
  6. MECLIZINE (CON.) [Concomitant]
  7. TRIAMTERINE (CON.) [Concomitant]
  8. LISINOPRIL (CON.) [Concomitant]
  9. FELOPIDINE (CON.) [Concomitant]
  10. VITAMIN (CON.) [Concomitant]
  11. GABAPENTIN (CON.) [Concomitant]
  12. PHENALOPYRIDINE (CON.) [Concomitant]
  13. DIGOXIN [Suspect]
     Indication: CARDIAC DISORDER
     Dosage: 250 MCG;QD;PO
     Route: 048
     Dates: start: 20060115, end: 20080115
  14. AMOXICILLIN (CON.) [Concomitant]
  15. TOPROL XL (CON.) [Concomitant]
  16. CEPHALEXIN (CON.) [Concomitant]
  17. PAP (CON.) [Concomitant]
  18. UROXATRAL (CON.) [Concomitant]

REACTIONS (56)
  - CEREBROVASCULAR ACCIDENT [None]
  - BLOOD PRESSURE SYSTOLIC INCREASED [None]
  - COORDINATION ABNORMAL [None]
  - SLEEP DISORDER [None]
  - ANKLE FRACTURE [None]
  - ORTHOPNOEA [None]
  - MICTURITION URGENCY [None]
  - HYPOKALAEMIA [None]
  - DEMYELINATION [None]
  - HYPERTENSIVE CRISIS [None]
  - LACUNAR INFARCTION [None]
  - INTERVERTEBRAL DISC PROTRUSION [None]
  - ANGINA PECTORIS [None]
  - ATAXIA [None]
  - OEDEMA PERIPHERAL [None]
  - PRURITUS [None]
  - CEREBRAL ATROPHY [None]
  - ECONOMIC PROBLEM [None]
  - EMOTIONAL DISORDER [None]
  - MUSCULOSKELETAL PAIN [None]
  - NEUROPATHY PERIPHERAL [None]
  - VISUAL IMPAIRMENT [None]
  - PAIN IN EXTREMITY [None]
  - LEFT VENTRICULAR HYPERTROPHY [None]
  - CHOKING [None]
  - URINARY TRACT INFECTION [None]
  - AMNESIA [None]
  - MUSCLE SPASMS [None]
  - ATRIAL FIBRILLATION [None]
  - DYSARTHRIA [None]
  - THROMBOSIS [None]
  - FALL [None]
  - DYSPHAGIA [None]
  - INSOMNIA [None]
  - SWELLING [None]
  - PAIN [None]
  - DIZZINESS [None]
  - VASCULAR INSUFFICIENCY [None]
  - DEPRESSION [None]
  - OSTEOPENIA [None]
  - FAMILY STRESS [None]
  - SPINAL COLUMN STENOSIS [None]
  - ARTHRALGIA [None]
  - DECREASED APPETITE [None]
  - STRESS URINARY INCONTINENCE [None]
  - DEAFNESS [None]
  - DYSPHONIA [None]
  - APHASIA [None]
  - MULTIPLE INJURIES [None]
  - HEMIPLEGIA [None]
  - BALANCE DISORDER [None]
  - FATIGUE [None]
  - CORONARY ARTERY DISEASE [None]
  - BLINDNESS [None]
  - EPIGASTRIC DISCOMFORT [None]
  - TOXICITY TO VARIOUS AGENTS [None]
